FAERS Safety Report 23636664 (Version 2)
Quarter: 2024Q2

REPORT INFORMATION
  Report Type: Spontaneous
  Country: US (occurrence: US)
  Receive Date: 20240315
  Receipt Date: 20240409
  Transmission Date: 20240716
  Serious: No
  Sender: FDA-Public Use
  Company Number: US-PFIZER INC-202400048953

PATIENT
  Age: 11 Year
  Sex: Male
  Weight: 45.351 kg

DRUGS (3)
  1. GENOTROPIN [Suspect]
     Active Substance: SOMATROPIN
     Indication: Growth hormone deficiency
     Dosage: 1.0 UNKNOWN UNITS SIX DAYS A WEEK ONCE A DAY
     Dates: start: 202106, end: 202201
  2. TESTOSTERONE [Concomitant]
     Active Substance: TESTOSTERONE
     Indication: Blood testosterone abnormal
     Dosage: UNK
  3. LEVOTHYROXINE [Concomitant]
     Active Substance: LEVOTHYROXINE\LEVOTHYROXINE SODIUM
     Indication: Thyroid disorder
     Dosage: 50 UG, 1X/DAY

REACTIONS (2)
  - Device issue [Unknown]
  - Drug dose omission by device [Unknown]

NARRATIVE: CASE EVENT DATE: 20240221
